FAERS Safety Report 4778990-7 (Version None)
Quarter: 2005Q3

REPORT INFORMATION
  Report Type: 
  Country: None (occurrence: None)
  Receive Date: 20050923
  Receipt Date: 20050912
  Transmission Date: 20060218
  Serious: Yes (Other)
  Sender: FDA-Public Use
  Company Number: 217676

PATIENT
  Age: 78 Year
  Sex: Female
  Weight: 50 kg

DRUGS (18)
  1. RITUXAN [Suspect]
     Indication: NON-HODGKIN'S LYMPHOMA
     Dosage: SEE IMGAE
     Route: 042
     Dates: start: 20050310, end: 20050310
  2. RITUXAN [Suspect]
     Indication: NON-HODGKIN'S LYMPHOMA
     Dosage: SEE IMGAE
     Route: 042
     Dates: start: 20050330, end: 20050330
  3. RITUXAN [Suspect]
     Indication: NON-HODGKIN'S LYMPHOMA
     Dosage: SEE IMGAE
     Route: 042
     Dates: start: 20050421, end: 20050421
  4. RITUXAN [Suspect]
     Indication: NON-HODGKIN'S LYMPHOMA
     Dosage: SEE IMGAE
     Route: 042
     Dates: start: 20050517, end: 20050517
  5. RITUXAN [Suspect]
     Indication: NON-HODGKIN'S LYMPHOMA
     Dosage: SEE IMGAE
     Route: 042
     Dates: start: 20050609, end: 20050609
  6. RITUXAN [Suspect]
     Indication: NON-HODGKIN'S LYMPHOMA
     Dosage: SEE IMGAE
     Route: 042
     Dates: start: 20050616, end: 20050616
  7. THERARUBICIN (PIRARUBICIN) [Concomitant]
  8. CYCLOPHOSPHAMIDE [Concomitant]
  9. ONCOVIN [Concomitant]
  10. PREDONINE (PREDNISOLONE, PREDNISOLONE ACETATE, PREDNISOLONE SODIUM SUC [Concomitant]
  11. DIFENHYDRAMIN (DIPHENHYDRAMINE HYDROCHLORIDE) [Concomitant]
  12. LOXONIN (LOXOPROFEN SODIUM) [Concomitant]
  13. FAMOTIDINE [Concomitant]
  14. CLARITHROMYCIN [Concomitant]
  15. DIFLUCAN [Concomitant]
  16. SULFAMETHOXAZOLE + TRIMETHOPRIM [Concomitant]
  17. ISONIAZID [Concomitant]
  18. MAGNESIUM OXIDE (MAGNESIUM OXIDE) [Concomitant]

REACTIONS (3)
  - ANAEMIA [None]
  - NEUTROPENIA [None]
  - WHITE BLOOD CELL COUNT DECREASED [None]
